FAERS Safety Report 7972575-7 (Version None)
Quarter: 2011Q4

REPORT INFORMATION
  Report Type: 
  Country: None (occurrence: None)
  Receive Date: 20111213
  Receipt Date: 20111208
  Transmission Date: 20120403
  Serious: Yes (Hospitalization, Other)
  Sender: FDA-Public Use
  Company Number: US-BAYER-2011-106173

PATIENT
  Age: 59 Year
  Sex: Female

DRUGS (4)
  1. BETASERON [Suspect]
     Indication: MULTIPLE SCLEROSIS
     Dosage: UNK
     Route: 058
     Dates: start: 20060125, end: 20061002
  2. BETASERON [Suspect]
     Dosage: UNK
     Route: 058
     Dates: start: 20110628, end: 20110928
  3. BETASERON [Suspect]
     Dosage: UNK
     Route: 058
     Dates: start: 20070208, end: 20070501
  4. SOLU-MEDROL [Concomitant]
     Dosage: UNK
     Dates: start: 20110924

REACTIONS (2)
  - ANAEMIA [None]
  - COLON CANCER [None]
